FAERS Safety Report 6528792-6 (Version None)
Quarter: 2010Q1

REPORT INFORMATION
  Report Type: 
  Country: None (occurrence: None)
  Receive Date: 20100106
  Receipt Date: 20091224
  Transmission Date: 20100710
  Serious: No
  Sender: FDA-Public Use
  Company Number: US-B.I. PHARMACEUTICALS,INC./RIDGEFIELD-2009-BP-14864BP

PATIENT
  Sex: Female

DRUGS (2)
  1. SPIRIVA [Suspect]
     Indication: PROPHYLAXIS
     Dosage: 18 MCG
     Route: 055
     Dates: start: 20081201
  2. SPIRIVA [Suspect]
     Indication: BRONCHITIS

REACTIONS (7)
  - CATARACT [None]
  - DRUG INEFFECTIVE [None]
  - DYSPNOEA [None]
  - EYE PAIN [None]
  - PHOTOPHOBIA [None]
  - PHOTOPSIA [None]
  - VISUAL IMPAIRMENT [None]
